FAERS Safety Report 25506916 (Version 1)
Quarter: 2025Q3

REPORT INFORMATION
  Report Type: Spontaneous
  Country: US (occurrence: US)
  Receive Date: 20250702
  Receipt Date: 20250702
  Transmission Date: 20251020
  Serious: No
  Sender: RADIUS PHARM
  Company Number: US-RADIUS HEALTH INC.-US-RADIUS-25047510

PATIENT
  Sex: Female

DRUGS (1)
  1. TYMLOS [Suspect]
     Active Substance: ABALOPARATIDE
     Indication: Senile osteoporosis
     Dosage: 80 MICROGRAM, QD
     Route: 058

REACTIONS (8)
  - Migraine [Unknown]
  - Headache [Unknown]
  - Drug hypersensitivity [Unknown]
  - Nausea [Unknown]
  - Injection site reaction [Unknown]
  - Feeling abnormal [Recovered/Resolved]
  - Muscle spasms [Unknown]
  - Fatigue [Unknown]
